FAERS Safety Report 17261555 (Version 2)
Quarter: 2020Q1

REPORT INFORMATION
  Report Type: Report from Study
  Country: IT (occurrence: IT)
  Receive Date: 20200113
  Receipt Date: 20200331
  Transmission Date: 20200409
  Serious: Yes (Other)
  Sender: FDA-Public Use
  Company Number: IT-TEVA-2020-IT-1166740

PATIENT
  Age: 71 Year
  Sex: Male

DRUGS (8)
  1. ARIXTRA [Concomitant]
     Active Substance: FONDAPARINUX SODIUM
  2. METFORMIN [Concomitant]
     Active Substance: METFORMIN HYDROCHLORIDE
     Dosage: 850 MG
  3. QUINAPRIL CLORIDRATO/IDROCLOROTIAZIDE [Concomitant]
     Active Substance: HYDROCHLOROTHIAZIDE\QUINAPRIL HYDROCHLORIDE
  4. ATENOLOL. [Concomitant]
     Active Substance: ATENOLOL
     Dosage: 100 MG 1 DAYS
  5. LYRICA [Concomitant]
     Active Substance: PREGABALIN
  6. QUETIAPINE. [Suspect]
     Active Substance: QUETIAPINE
     Indication: COGNITIVE DISORDER
     Dosage: 25 MG 1 DAYS
     Route: 048
     Dates: start: 20181106, end: 20191106
  7. TOUJEO [Concomitant]
     Active Substance: INSULIN GLARGINE
  8. TORVAST 20 MG COMPRESSE MASTICABILI [Concomitant]
     Dosage: 1 DOSAGE FORMS 1 DAYS

REACTIONS (3)
  - Altered state of consciousness [Recovering/Resolving]
  - Agitation [Recovering/Resolving]
  - Sedation [Recovering/Resolving]

NARRATIVE: CASE EVENT DATE: 20191106
